FAERS Safety Report 6102710-7 (Version None)
Quarter: 2009Q1

REPORT INFORMATION
  Report Type: 
  Country: None (occurrence: None)
  Receive Date: 20090226
  Receipt Date: 20090217
  Transmission Date: 20090719
  Serious: Yes (Hospitalization)
  Sender: FDA-Public Use
  Company Number: 2009-189249-NL

PATIENT
  Age: 63 Year
  Sex: Male

DRUGS (9)
  1. BCG LIVE [Suspect]
     Dosage: INTRAVESCIAL
     Route: 043
     Dates: start: 20070611, end: 20070611
  2. BCG LIVE [Suspect]
     Dosage: INTRAVESCIAL
     Route: 043
     Dates: start: 20070823, end: 20070823
  3. BCG LIVE [Suspect]
     Dosage: INTRAVESCIAL
     Route: 043
     Dates: start: 20070830, end: 20070830
  4. BCG LIVE [Suspect]
     Dosage: INTRAVESCIAL
     Route: 043
     Dates: start: 20070906, end: 20070906
  5. BCG LIVE [Suspect]
     Dosage: INTRAVESCIAL
     Route: 043
     Dates: start: 20070919, end: 20070919
  6. BCG LIVE [Suspect]
     Dosage: INTRAVESCIAL
     Route: 043
     Dates: start: 20070920, end: 20070920
  7. ATENOLOL [Concomitant]
  8. ENALAPRIL [Concomitant]
  9. TAMSULOSIN HCL [Concomitant]

REACTIONS (2)
  - BLADDER FIBROSIS [None]
  - INFLAMMATION [None]
